FAERS Safety Report 18423007 (Version 1)
Quarter: 2020Q4

REPORT INFORMATION
  Report Type: Spontaneous
  Country: US (occurrence: US)
  Receive Date: 20201024
  Receipt Date: 20201024
  Transmission Date: 20210114
  Serious: No
  Sender: FDA-Public Use
  Company Number: NVSC2020US284206

PATIENT

DRUGS (2)
  1. ZYKADIA [Suspect]
     Active Substance: CERITINIB
     Indication: PRODUCT USED FOR UNKNOWN INDICATION
     Dosage: 750 MG
     Route: 065
  2. ZYKADIA [Suspect]
     Active Substance: CERITINIB
     Dosage: 300 MG
     Route: 065

REACTIONS (2)
  - Vomiting [Unknown]
  - Nausea [Unknown]
